FAERS Safety Report 7962116-2 (Version None)
Quarter: 2011Q4

REPORT INFORMATION
  Report Type: 
  Country: None (occurrence: None)
  Receive Date: 20111207
  Receipt Date: 20111017
  Transmission Date: 20120403
  Serious: Yes (Hospitalization, Other)
  Sender: FDA-Public Use
  Company Number: US-ROCHE-1014193

PATIENT
  Sex: Female

DRUGS (3)
  1. PEGASYS [Suspect]
     Indication: HEPATITIS C
     Route: 058
     Dates: start: 20110912
  2. TELAPREVIR [Suspect]
     Indication: HEPATITIS C
     Dates: start: 20110912
  3. COPEGUS [Suspect]
     Indication: HEPATITIS C
     Route: 048
     Dates: start: 20110912

REACTIONS (12)
  - BLOODY DISCHARGE [None]
  - CHILLS [None]
  - BLOOD URINE PRESENT [None]
  - PYREXIA [None]
  - DYSGEUSIA [None]
  - MEMORY IMPAIRMENT [None]
  - NAUSEA [None]
  - COGNITIVE DISORDER [None]
  - HYPOTENSION [None]
  - SKIN ODOUR ABNORMAL [None]
  - DEPRESSION [None]
  - ORAL PAIN [None]
